FAERS Safety Report 8903409 (Version 1)
Quarter: 2012Q4

REPORT INFORMATION
  Report Type: 
  Country: US (occurrence: US)
  Receive Date: 20121112
  Receipt Date: 20121112
  Transmission Date: 20130627
  Serious: No
  Sender: FDA-Public Use
  Company Number: US-BAYER-2012-118131

PATIENT
  Age: 42 Year
  Sex: Female

DRUGS (3)
  1. MIRENA [Suspect]
     Indication: FIBROIDS
     Dosage: 20 mcg/24hr, CONT
     Route: 015
     Dates: start: 20121008, end: 20121105
  2. MIRENA [Suspect]
     Indication: MENSTRUATION ABNORMAL
  3. MIRENA [Suspect]
     Indication: MENORRHAGIA

REACTIONS (2)
  - Device expulsion [None]
  - Off label use [None]
